FAERS Safety Report 8966481 (Version 1)
Quarter: 2012Q4

REPORT INFORMATION
  Report Type: 
  Country: US (occurrence: US)
  Receive Date: 20121216
  Receipt Date: 20121216
  Transmission Date: 20130627
  Serious: Yes (Hospitalization, Other)
  Sender: FDA-Public Use
  Company Number: US-UCBSA-072902

PATIENT
  Age: 80 Year
  Sex: Male

DRUGS (2)
  1. KEPPRA [Suspect]
     Indication: GRAND MAL CONVULSION
     Dosage: TAPERED DOWN AND STOPPED
     Dates: start: 2012, end: 2012
  2. KEPPRA [Suspect]
     Indication: GRAND MAL CONVULSION
     Dosage: DAILY DOSE: 3750 MG (TWO 750 MG IN THE AM+ ONE 750 MG AT NOON + TWO 750 MG AT 6 PM)
     Dates: start: 2007, end: 201209

REACTIONS (4)
  - Status epilepticus [Unknown]
  - Hallucination, visual [Recovered/Resolved]
  - Overdose [Unknown]
  - Wrong technique in drug usage process [Unknown]
